FAERS Safety Report 6915029-9 (Version None)
Quarter: 2010Q3

REPORT INFORMATION
  Report Type: 
  Country: None (occurrence: None)
  Receive Date: 20100804
  Receipt Date: 20100722
  Transmission Date: 20110219
  Serious: Yes (Hospitalization)
  Sender: FDA-Public Use
  Company Number: 7011986

PATIENT
  Age: 44 Year
  Sex: Female
  Weight: 163 kg

DRUGS (3)
  1. REBIF [Suspect]
     Indication: MULTIPLE SCLEROSIS
     Dosage: 44 MCG, 3 IN 1 WK, SUBCUTANEOUS
     Route: 058
     Dates: start: 20090623
  2. COUMADIN [Concomitant]
  3. SYNTHROID [Concomitant]

REACTIONS (4)
  - DYSPHAGIA [None]
  - PNEUMONIA ASPIRATION [None]
  - SALIVA ALTERED [None]
  - SENSORY LOSS [None]
